FAERS Safety Report 23848278 (Version 1)
Quarter: 2024Q2

REPORT INFORMATION
  Report Type: Spontaneous
  Country: US (occurrence: US)
  Receive Date: 20240513
  Receipt Date: 20240513
  Transmission Date: 20240716
  Serious: Yes (Life-Threatening, Hospitalization)
  Sender: FDA-Public Use
  Company Number: US-MLMSERVICE-20240429-PI041747-00117-1

PATIENT
  Age: 49 Year
  Sex: Male

DRUGS (32)
  1. BORTEZOMIB [Suspect]
     Active Substance: BORTEZOMIB
     Indication: Plasma cell myeloma
     Dosage: C1W1, CYCLIC
     Dates: start: 20230927, end: 2023
  2. BORTEZOMIB [Suspect]
     Active Substance: BORTEZOMIB
     Indication: Light chain disease
     Dosage: C1W2,CYCLIC
     Dates: start: 20231003, end: 2023
  3. BORTEZOMIB [Suspect]
     Active Substance: BORTEZOMIB
     Dosage: C2W1, CYCLIC
     Dates: start: 20231018, end: 2023
  4. BORTEZOMIB [Suspect]
     Active Substance: BORTEZOMIB
     Dosage: C2W2, CYCLIC
     Dates: start: 20231024, end: 2023
  5. BORTEZOMIB [Suspect]
     Active Substance: BORTEZOMIB
     Dosage: C3W1, CYCLIC
     Dates: start: 20231107, end: 2023
  6. BORTEZOMIB [Suspect]
     Active Substance: BORTEZOMIB
     Dosage: C4W1, CYCLIC
     Dates: start: 20231121, end: 2023
  7. BORTEZOMIB [Suspect]
     Active Substance: BORTEZOMIB
     Dosage: C4W2, CYCLIC
     Dates: start: 20231128, end: 2023
  8. BORTEZOMIB [Suspect]
     Active Substance: BORTEZOMIB
     Dosage: C5W1, CYCLIC
     Dates: start: 20231212, end: 2023
  9. BORTEZOMIB [Suspect]
     Active Substance: BORTEZOMIB
     Dosage: C6W1, CYCLIC
     Dates: start: 20240103, end: 2024
  10. BORTEZOMIB [Suspect]
     Active Substance: BORTEZOMIB
     Dosage: C6W2, CYCLIC
     Dates: start: 20240110, end: 2024
  11. BORTEZOMIB [Suspect]
     Active Substance: BORTEZOMIB
     Dosage: C7W1, CYCLIC
     Dates: start: 20240124, end: 2024
  12. BORTEZOMIB [Suspect]
     Active Substance: BORTEZOMIB
     Dosage: C7W2, CYCLIC
     Dates: start: 20240131, end: 2024
  13. BORTEZOMIB [Suspect]
     Active Substance: BORTEZOMIB
     Dosage: C8W1, CYCLIC
     Dates: start: 20240214, end: 2024
  14. BORTEZOMIB [Suspect]
     Active Substance: BORTEZOMIB
     Dosage: UNK
  15. DEXAMETHASONE [Suspect]
     Active Substance: DEXAMETHASONE
     Indication: Plasma cell myeloma
     Dosage: C1W1, CYCLIC
     Dates: start: 20230927, end: 2023
  16. DEXAMETHASONE [Suspect]
     Active Substance: DEXAMETHASONE
     Indication: Light chain disease
     Dosage: C1W2, CYCLIC
     Dates: start: 20231003, end: 2023
  17. DEXAMETHASONE [Suspect]
     Active Substance: DEXAMETHASONE
     Dosage: C3W1, CYCLIC
     Dates: start: 20231107, end: 2023
  18. DEXAMETHASONE [Suspect]
     Active Substance: DEXAMETHASONE
     Dosage: C4W1, CYCLIC
     Dates: start: 20231121, end: 2023
  19. DEXAMETHASONE [Suspect]
     Active Substance: DEXAMETHASONE
     Dosage: C4W2,CYCLIC
     Dates: start: 20231128, end: 2023
  20. DEXAMETHASONE [Suspect]
     Active Substance: DEXAMETHASONE
     Dosage: C5W1,CYCLIC
     Dates: start: 20231212, end: 2023
  21. DEXAMETHASONE [Suspect]
     Active Substance: DEXAMETHASONE
     Dosage: C6W1,CYCLIC
     Dates: start: 20240103, end: 2024
  22. DEXAMETHASONE [Suspect]
     Active Substance: DEXAMETHASONE
     Dosage: C8W1,CYCLIC
     Dates: start: 20240214, end: 2024
  23. CYCLOPHOSPHAMIDE [Suspect]
     Active Substance: CYCLOPHOSPHAMIDE
     Indication: Plasma cell myeloma
     Dosage: C1W1
     Dates: start: 20230927, end: 2023
  24. CYCLOPHOSPHAMIDE [Suspect]
     Active Substance: CYCLOPHOSPHAMIDE
     Indication: Light chain disease
     Dosage: C1W2
     Dates: start: 20231003, end: 2023
  25. CYCLOPHOSPHAMIDE [Suspect]
     Active Substance: CYCLOPHOSPHAMIDE
     Dosage: C3W1
     Dates: start: 20231107, end: 2023
  26. CYCLOPHOSPHAMIDE [Suspect]
     Active Substance: CYCLOPHOSPHAMIDE
     Dosage: C4W1
     Dates: start: 20231121, end: 2023
  27. CYCLOPHOSPHAMIDE [Suspect]
     Active Substance: CYCLOPHOSPHAMIDE
     Dosage: C4W2,CYCLIC
     Dates: start: 20231128, end: 2023
  28. CYCLOPHOSPHAMIDE [Suspect]
     Active Substance: CYCLOPHOSPHAMIDE
     Dosage: C5W1, CYCLIC
     Dates: start: 20231212, end: 2023
  29. CYCLOPHOSPHAMIDE [Suspect]
     Active Substance: CYCLOPHOSPHAMIDE
     Dosage: C6W1, CYCLIC
     Dates: start: 20240103, end: 2024
  30. CYCLOPHOSPHAMIDE [Suspect]
     Active Substance: CYCLOPHOSPHAMIDE
     Dosage: C6W2, CYCLIC
     Dates: start: 20240110, end: 2024
  31. CYCLOPHOSPHAMIDE [Suspect]
     Active Substance: CYCLOPHOSPHAMIDE
     Dosage: C7W1 CYCLIC
     Dates: start: 20240124, end: 2024
  32. CYCLOPHOSPHAMIDE [Suspect]
     Active Substance: CYCLOPHOSPHAMIDE
     Dosage: C8W1, CYCLIC
     Dates: start: 20240214, end: 2024

REACTIONS (1)
  - Heart failure with reduced ejection fraction [Unknown]
